FAERS Safety Report 7633970-9 (Version None)
Quarter: 2011Q3

REPORT INFORMATION
  Report Type: 
  Country: None (occurrence: None)
  Receive Date: 20110725
  Receipt Date: 20110720
  Transmission Date: 20111222
  Serious: Yes (Life-Threatening, Hospitalization)
  Sender: FDA-Public Use
  Company Number: AU-ASTRAZENECA-2011SE43165

PATIENT
  Age: 22 Year
  Sex: Female

DRUGS (3)
  1. MIDAZOLAM HCL [Suspect]
     Route: 065
     Dates: start: 20110629, end: 20110629
  2. PROPOFOL [Suspect]
     Route: 042
     Dates: start: 20110629, end: 20110629
  3. FENTANYL [Suspect]
     Route: 065
     Dates: start: 20110629, end: 20110629

REACTIONS (5)
  - HYPOTENSION [None]
  - SYNCOPE [None]
  - ENDOTOXAEMIA [None]
  - PYREXIA [None]
  - CHILLS [None]
